FAERS Safety Report 7516193-3 (Version None)
Quarter: 2011Q2

REPORT INFORMATION
  Report Type: 
  Country: None (occurrence: None)
  Receive Date: 20110601
  Receipt Date: 20110530
  Transmission Date: 20111010
  Serious: Yes (Other)
  Sender: FDA-Public Use
  Company Number: AR-ROCHE-779940

PATIENT
  Sex: Female

DRUGS (1)
  1. CAPECITABINE [Suspect]
     Indication: BREAST CANCER
     Dosage: FREQUENCY: REPORTED AS DAILY
     Route: 048
     Dates: start: 20110314, end: 20110414

REACTIONS (4)
  - NEOPLASM MALIGNANT [None]
  - BLOOD DISORDER [None]
  - ASTHENIA [None]
  - MUCOSAL INFLAMMATION [None]
